FAERS Safety Report 7329069-1 (Version None)
Quarter: 2011Q1

REPORT INFORMATION
  Report Type: 
  Country: None (occurrence: None)
  Receive Date: 20110303
  Receipt Date: 20110221
  Transmission Date: 20110831
  Serious: Yes (Hospitalization)
  Sender: FDA-Public Use
  Company Number: DE-BAXTER-2010BH029311

PATIENT
  Age: 3 Year
  Sex: Male
  Weight: 12 kg

DRUGS (3)
  1. FEIBA [Suspect]
     Route: 065
     Dates: start: 20100821, end: 20100821
  2. FEIBA [Suspect]
     Indication: FACTOR VIII DEFICIENCY
     Route: 065
     Dates: start: 20081101, end: 20100701
  3. FEIBA [Suspect]
     Route: 065
     Dates: start: 20100822, end: 20100822

REACTIONS (1)
  - FEBRILE CONVULSION [None]
